FAERS Safety Report 13973762 (Version 1)
Quarter: 2017Q3

REPORT INFORMATION
  Report Type: Spontaneous
  Country: CA (occurrence: CA)
  Receive Date: 20170915
  Receipt Date: 20170915
  Transmission Date: 20171128
  Serious: Yes (Other)
  Sender: FDA-Public Use
  Company Number: CA-009507513-1709CAN005369

PATIENT
  Age: 58 Year
  Sex: Male

DRUGS (6)
  1. VANCOMYCIN [Concomitant]
     Active Substance: VANCOMYCIN
     Indication: BACTERIAL SEPSIS
  2. ALBENDAZOLE [Concomitant]
     Active Substance: ALBENDAZOLE
     Indication: STRONGYLOIDIASIS
     Dosage: GIVE VIA NASOGASTRIC
  3. HEARTGARD [Suspect]
     Active Substance: IVERMECTIN
     Indication: STRONGYLOIDIASIS
     Dosage: 200 MICROGRAM PER KILOGRAM, TOTALLING 12 MG
     Route: 054
  4. HEARTGARD [Suspect]
     Active Substance: IVERMECTIN
     Dosage: GIVE VIA NASOGASTRIC
  5. IMIPENEM [Concomitant]
     Active Substance: IMIPENEM
     Indication: BACTERIAL SEPSIS
  6. DEXAMETHASONE. [Concomitant]
     Active Substance: DEXAMETHASONE
     Indication: CENTRAL NERVOUS SYSTEM LYMPHOMA
     Route: 042

REACTIONS (3)
  - Wrong technique in product usage process [Unknown]
  - Drug level below therapeutic [Unknown]
  - Product use issue [Unknown]
